FAERS Safety Report 11604334 (Version 1)
Quarter: 2015Q4

REPORT INFORMATION
  Report Type: Spontaneous
  Country: US (occurrence: None)
  Receive Date: 20151006
  Receipt Date: 20151006
  Transmission Date: 20160304
  Serious: Yes (Hospitalization)
  Sender: FDA-Public Use
  Company Number: None

PATIENT
  Age: 72 Year
  Sex: Female
  Weight: 61.24 kg

DRUGS (9)
  1. SUCRALFATE. [Concomitant]
     Active Substance: SUCRALFATE
  2. POTASSIUM [Concomitant]
     Active Substance: POTASSIUM
  3. COMBIVENT RESPIMAT [Concomitant]
     Active Substance: ALBUTEROL SULFATE\IPRATROPIUM BROMIDE
  4. GABAPENTIN. [Concomitant]
     Active Substance: GABAPENTIN
  5. LEVOTHYROXINE. [Suspect]
     Active Substance: LEVOTHYROXINE
     Dosage: 1
     Route: 048
     Dates: start: 20150928, end: 20150929
  6. OMEPRAZOLE. [Concomitant]
     Active Substance: OMEPRAZOLE
  7. FENOFIBRATE. [Suspect]
     Active Substance: FENOFIBRATE
     Dosage: 1
     Route: 048
     Dates: start: 20150928, end: 20150929
  8. DICLOFENAC SODIUM. [Concomitant]
     Active Substance: DICLOFENAC SODIUM
  9. BABY ASPIRIN [Concomitant]
     Active Substance: ASPIRIN

REACTIONS (5)
  - Skin discolouration [None]
  - Peripheral swelling [None]
  - Pain in extremity [None]
  - Muscle spasms [None]
  - Musculoskeletal disorder [None]

NARRATIVE: CASE EVENT DATE: 20150929
